FAERS Safety Report 13635623 (Version 1)
Quarter: 2017Q2

REPORT INFORMATION
  Report Type: Spontaneous
  Country: NL (occurrence: NL)
  Receive Date: 20170609
  Receipt Date: 20170609
  Transmission Date: 20170830
  Serious: Yes (Hospitalization)
  Sender: FDA-Public Use
  Company Number: NL-AUROBINDO-AUR-APL-2010-02872

PATIENT

DRUGS (2)
  1. CODEINE [Suspect]
     Active Substance: CODEINE
     Indication: PRODUCT USED FOR UNKNOWN INDICATION
     Dosage: 5 G,TOTAL,
     Route: 048
  2. PARACETAMOL 500 MG, DISPERGEERBARE TABLETTEN [Suspect]
     Active Substance: ACETAMINOPHEN
     Indication: PRODUCT USED FOR UNKNOWN INDICATION
     Dosage: 50 G,TOTAL,
     Route: 048

REACTIONS (6)
  - Poisoning [Unknown]
  - Hepatic failure [Unknown]
  - Overdose [Unknown]
  - Hypothermia [Unknown]
  - Coma scale abnormal [Unknown]
  - Loss of consciousness [None]
